FAERS Safety Report 7224109-2 (Version None)
Quarter: 2011Q1

REPORT INFORMATION
  Report Type: 
  Country: None (occurrence: None)
  Receive Date: 20110106
  Receipt Date: 20110106
  Transmission Date: 20110831
  Serious: Yes (Hospitalization)
  Sender: FDA-Public Use
  Company Number: None

PATIENT
  Age: 56 Year
  Sex: Female
  Weight: 50 kg

DRUGS (10)
  1. EXCEDRIN (MIGRAINE) [Suspect]
     Indication: HEADACHE
     Dosage: 600MG BID PO  RECENT INCREASE
     Route: 048
  2. OS-CAL [Concomitant]
  3. VIT D [Concomitant]
  4. FOLIC ACID [Concomitant]
  5. METHOTREXATE [Concomitant]
  6. ORENCIA [Concomitant]
  7. FLAXSEED OIL [Concomitant]
  8. CYMBALTA [Concomitant]
  9. M.V.I. [Concomitant]
  10. IBUPROFEN [Suspect]
     Indication: MIGRAINE
     Dosage: 600MG BID PO  RECENT W/INCREASE
     Route: 048

REACTIONS (5)
  - SYNCOPE [None]
  - HAEMATOCRIT DECREASED [None]
  - GASTROINTESTINAL HAEMORRHAGE [None]
  - GASTRIC ULCER [None]
  - HAEMOGLOBIN DECREASED [None]
